FAERS Safety Report 18692821 (Version 2)
Quarter: 2021Q1

REPORT INFORMATION
  Report Type: Report from Study
  Country: CA (occurrence: CA)
  Receive Date: 20210104
  Receipt Date: 20210202
  Transmission Date: 20210419
  Serious: Yes (Other)
  Sender: FDA-Public Use
  Company Number: CA-JNJFOC-20201225832

PATIENT
  Age: 50 Year
  Sex: Female
  Weight: 118 kg

DRUGS (2)
  1. STELARA [Suspect]
     Active Substance: USTEKINUMAB
     Route: 042
     Dates: start: 20201228
  2. STELARA [Suspect]
     Active Substance: USTEKINUMAB
     Indication: CROHN^S DISEASE
     Route: 058
     Dates: start: 20181205

REACTIONS (8)
  - Tooth infection [Recovered/Resolved with Sequelae]
  - Dental caries [Recovered/Resolved with Sequelae]
  - Drug ineffective [Unknown]
  - Gastrointestinal disorder [Unknown]
  - Coccydynia [Not Recovered/Not Resolved]
  - Ileal stenosis [Unknown]
  - Crohn^s disease [Not Recovered/Not Resolved]
  - Anal fissure [Unknown]

NARRATIVE: CASE EVENT DATE: 2020
